FAERS Safety Report 6967675-4 (Version None)
Quarter: 2010Q3

REPORT INFORMATION
  Report Type: 
  Country: None (occurrence: None)
  Receive Date: 20100901
  Receipt Date: 20100818
  Transmission Date: 20110219
  Serious: Yes (Hospitalization)
  Sender: FDA-Public Use
  Company Number: DSA_43779_2010

PATIENT
  Age: 69 Year
  Sex: Male

DRUGS (1)
  1. ENALAPRIL MALEATE [Suspect]
     Indication: HYPERTENSION
     Dosage: (DF)

REACTIONS (3)
  - ANGIOEDEMA [None]
  - RESPIRATORY FAILURE [None]
  - URTICARIA [None]
